FAERS Safety Report 4466309-0 (Version None)
Quarter: 2004Q4

REPORT INFORMATION
  Report Type: 
  Country: None (occurrence: None)
  Receive Date: 20041005
  Receipt Date: 20040506
  Transmission Date: 20050328
  Serious: Yes (Other)
  Sender: FDA-Public Use
  Company Number: US-GLAXOSMITHKLINE-A0509808A

PATIENT
  Age: 41 Year
  Sex: Female
  Weight: 56.8 kg

DRUGS (4)
  1. VALTREX [Suspect]
     Route: 048
     Dates: start: 20010401
  2. ZOLOFT [Concomitant]
     Indication: DRUG USE FOR UNKNOWN INDICATION
     Route: 048
  3. PRENATAL VITAMINS [Concomitant]
  4. CLARINEX [Concomitant]

REACTIONS (2)
  - ABORTION MISSED [None]
  - HERPES SIMPLEX [None]
